FAERS Safety Report 10266256 (Version 4)
Quarter: 2016Q1

REPORT INFORMATION
  Report Type: Report from Study
  Country: FR (occurrence: FR)
  Receive Date: 20140627
  Receipt Date: 20160202
  Transmission Date: 20160525
  Serious: Yes (Death, Hospitalization, Other)
  Sender: FDA-Public Use
  Company Number: FR-GILEAD-2014-0106386

PATIENT
  Age: 62 Year
  Sex: Male
  Weight: 68 kg

DRUGS (14)
  1. CONTRAMAL [Suspect]
     Active Substance: TRAMADOL HYDROCHLORIDE
     Indication: PAIN
     Dosage: 100 MG, QD
     Route: 065
     Dates: start: 20140515
  2. FORTIMEL [Suspect]
     Active Substance: DIETARY SUPPLEMENT
     Indication: MALNUTRITION
     Dosage: 3 DF, QD
     Route: 065
     Dates: start: 20140515
  3. INEXIUM                            /01479302/ [Suspect]
     Active Substance: ESOMEPRAZOLE MAGNESIUM
     Indication: GASTROOESOPHAGEAL REFLUX DISEASE
     Dosage: 40 MG, QD
     Route: 065
     Dates: start: 20130731
  4. LOVENOX [Suspect]
     Active Substance: ENOXAPARIN SODIUM
     Indication: THROMBOSIS
     Dosage: 0.4 MG, QD
     Route: 065
     Dates: start: 20140515
  5. ATARAX [Suspect]
     Active Substance: HYDROXYZINE\HYDROXYZINE HYDROCHLORIDE
     Indication: ANXIETY
     Dosage: 25 MG, QD
     Route: 065
     Dates: start: 20140515
  6. DUPHALAC [Suspect]
     Active Substance: LACTULOSE
     Indication: ENCEPHALOPATHY
     Dosage: 8 DF, QD
     Route: 065
     Dates: start: 20140515
  7. ZOPHREN                            /00955301/ [Suspect]
     Active Substance: ONDANSETRON
     Indication: NAUSEA
     Dosage: 8 MG, QD
     Route: 065
     Dates: start: 20140515
  8. INNOHEP [Suspect]
     Active Substance: TINZAPARIN SODIUM
     Indication: VENOUS THROMBOSIS
     Dosage: UNK
     Route: 065
     Dates: start: 201404
  9. INIPOMP [Suspect]
     Active Substance: PANTOPRAZOLE SODIUM
     Indication: GASTROOESOPHAGEAL REFLUX DISEASE
     Dosage: 40 MG, QD
     Route: 065
     Dates: start: 20130731
  10. REVOLADE [Concomitant]
     Active Substance: ELTROMBOPAG
     Indication: THROMBOCYTOPENIA
  11. SOFOSBUVIR [Suspect]
     Active Substance: SOFOSBUVIR
     Indication: HEPATITIS C
     Dosage: 400 MG, QD
     Route: 048
     Dates: start: 20140315, end: 20140520
  12. EPO                                /00909301/ [Suspect]
     Active Substance: ERYTHROPOIETIN
     Indication: ANAEMIA
     Dosage: 20000 IU, Q1WK
     Route: 065
     Dates: start: 20140507
  13. LASILIX                            /00032601/ [Suspect]
     Active Substance: FUROSEMIDE
     Indication: ASCITES
     Dosage: UNK
     Route: 065
     Dates: start: 20130721
  14. COPEGUS [Suspect]
     Active Substance: RIBAVIRIN
     Indication: HEPATITIS C
     Dosage: 1000 MG, QD
     Route: 065
     Dates: start: 20140315, end: 20140520

REACTIONS (3)
  - Tumour thrombosis [Fatal]
  - Hepatic cirrhosis [Fatal]
  - Hepatocellular carcinoma [Fatal]

NARRATIVE: CASE EVENT DATE: 20140515
